FAERS Safety Report 6137975-9 (Version None)
Quarter: 2009Q1

REPORT INFORMATION
  Report Type: 
  Country: None (occurrence: None)
  Receive Date: 20090331
  Receipt Date: 20090321
  Transmission Date: 20090719
  Serious: Yes (Other)
  Sender: FDA-Public Use
  Company Number: CH-ABBOTT-09P-151-0562066-00

PATIENT
  Age: 35 Year
  Sex: Female

DRUGS (5)
  1. NORVIR [Suspect]
     Indication: ASYMPTOMATIC HIV INFECTION
     Route: 048
  2. REYATAZ [Suspect]
     Indication: ASYMPTOMATIC HIV INFECTION
     Route: 048
     Dates: start: 20080101
  3. KIVEXA [Suspect]
     Indication: ASYMPTOMATIC HIV INFECTION
     Route: 048
  4. PONSTAN [Suspect]
     Indication: PERIPHERAL NERVE LESION
     Dates: start: 20080221, end: 20081101
  5. ZALDIAR [Suspect]
     Indication: PERIPHERAL NERVE LESION
     Route: 048
     Dates: start: 20080221, end: 20081101

REACTIONS (2)
  - INSOMNIA [None]
  - SCIATICA [None]
